FAERS Safety Report 5818997-1 (Version None)
Quarter: 2008Q3

REPORT INFORMATION
  Report Type: 
  Country: None (occurrence: None)
  Receive Date: 20080717
  Receipt Date: 20080708
  Transmission Date: 20090109
  Serious: Yes (Hospitalization)
  Sender: FDA-Public Use
  Company Number: GXKR2006GB04750

PATIENT
  Age: 65 Year
  Sex: Male

DRUGS (2)
  1. WARFARIN SODIUM [Suspect]
     Indication: ATRIAL FIBRILLATION
  2. AMLODIPINE [Concomitant]

REACTIONS (9)
  - CONJUNCTIVAL DISORDER [None]
  - CONJUNCTIVAL HAEMORRHAGE [None]
  - CORNEAL DISORDER [None]
  - DIPLOPIA [None]
  - EYE MOVEMENT DISORDER [None]
  - EYE PAIN [None]
  - HAEMATOMA [None]
  - LAGOPHTHALMOS [None]
  - TEAR DISCOLOURATION [None]
